FAERS Safety Report 6942172-0 (Version None)
Quarter: 2010Q3

REPORT INFORMATION
  Report Type: 
  Country: None (occurrence: None)
  Receive Date: 20100826
  Receipt Date: 20100726
  Transmission Date: 20110219
  Serious: No
  Sender: FDA-Public Use
  Company Number: US-BAYER-201018818BCC

PATIENT
  Age: 46 Year
  Sex: Male
  Weight: 102 kg

DRUGS (2)
  1. ALEVE (CAPLET) [Suspect]
     Indication: BACK PAIN
     Dosage: CONSUMER TOOK 2 ALEVE TABLETS FOR THE FIRST DOSE AND 1 TABLET EVERY 8 TO 12 HOURS
     Route: 048
  2. ALEVE (CAPLET) [Suspect]
     Dosage: CONSUMER TOOK 2 ALEVE TABLETS FOR THE FIRST DOSE AND 1 TABLET EVERY 8 TO 12 HOURS
     Route: 048

REACTIONS (1)
  - BACK PAIN [None]
